FAERS Safety Report 13552961 (Version 1)
Quarter: 2017Q2

REPORT INFORMATION
  Report Type: Spontaneous
  Country: US (occurrence: US)
  Receive Date: 20170517
  Receipt Date: 20170517
  Transmission Date: 20170830
  Serious: No
  Sender: FDA-Public Use
  Company Number: US-PFIZER INC-2017211374

PATIENT
  Age: 52 Year
  Sex: Male
  Weight: 97 kg

DRUGS (2)
  1. HYDROCORTISONE. [Suspect]
     Active Substance: HYDROCORTISONE
     Indication: ADRENAL INSUFFICIENCY
     Dosage: 30 MG, 1X/DAY (30 MG IN THE MORNING/JUST 30 MG DAILY, ALL AT ONCE IN THE MORNING)
  2. HYDROCORTISONE. [Suspect]
     Active Substance: HYDROCORTISONE
     Dosage: 20/10 MG/TRIED SPLITTING HIS DOSE BETWEEN THE MORNING AND AFTERNOON

REACTIONS (2)
  - Drug intolerance [Unknown]
  - Inappropriate schedule of drug administration [Unknown]
